FAERS Safety Report 17581149 (Version 1)
Quarter: 2020Q1

REPORT INFORMATION
  Report Type: Spontaneous
  Country: JP (occurrence: JP)
  Receive Date: 20200325
  Receipt Date: 20200325
  Transmission Date: 20200409
  Serious: Yes (Hospitalization)
  Sender: FDA-Public Use
  Company Number: JP-ASTRAZENECA-2020SE38593

PATIENT
  Age: 31465 Day
  Sex: Female
  Weight: 65 kg

DRUGS (1)
  1. FORXIGA [Suspect]
     Active Substance: DAPAGLIFLOZIN
     Indication: TYPE 2 DIABETES MELLITUS
     Route: 048
     Dates: start: 20200114, end: 20200303

REACTIONS (2)
  - Lymphadenitis bacterial [Recovered/Resolved]
  - Vulval cellulitis [Recovered/Resolved]

NARRATIVE: CASE EVENT DATE: 20200303
